FAERS Safety Report 13639639 (Version 1)
Quarter: 2017Q2

REPORT INFORMATION
  Report Type: Spontaneous
  Country: US (occurrence: US)
  Receive Date: 20170609
  Receipt Date: 20170609
  Transmission Date: 20170830
  Serious: Yes (Hospitalization)
  Sender: FDA-Public Use
  Company Number: US-ROCHE-1071636

PATIENT
  Sex: Male

DRUGS (1)
  1. CLONAZEPAM. [Suspect]
     Active Substance: CLONAZEPAM
     Indication: MUSCLE SPASMS
     Route: 048

REACTIONS (5)
  - Depression [Recovered/Resolved]
  - Muscle spasms [Recovering/Resolving]
  - Asthma [Unknown]
  - Blood testosterone decreased [Recovered/Resolved]
  - Muscle spasms [Not Recovered/Not Resolved]
